FAERS Safety Report 7486159-0 (Version None)
Quarter: 2011Q2

REPORT INFORMATION
  Report Type: 
  Country: None (occurrence: None)
  Receive Date: 20110517
  Receipt Date: 20110405
  Transmission Date: 20111010
  Serious: Yes (Hospitalization, Other)
  Sender: FDA-Public Use
  Company Number: US-BAYER-201025560NA

PATIENT
  Age: 25 Year
  Sex: Female

DRUGS (4)
  1. YASMIN [Suspect]
     Indication: PRODUCT USED FOR UNKNOWN INDICATION
     Dosage: UNK
     Route: 048
     Dates: start: 20070201
  2. YAZ [Suspect]
     Indication: PRODUCT USED FOR UNKNOWN INDICATION
     Dosage: UNK
     Route: 048
     Dates: start: 20070201
  3. ASCORBIC ACID [Concomitant]
  4. AMPHETAMINE AND DEXTROAMPHETAMINE SALTS [Concomitant]

REACTIONS (6)
  - NAUSEA [None]
  - GALLBLADDER INJURY [None]
  - GASTRITIS [None]
  - ABDOMINAL PAIN [None]
  - HAEMATEMESIS [None]
  - CHOLECYSTITIS CHRONIC [None]
